FAERS Safety Report 9830540 (Version 1)
Quarter: 2014Q1

REPORT INFORMATION
  Report Type: Spontaneous
  Country: US (occurrence: US)
  Receive Date: 20140120
  Receipt Date: 20140120
  Transmission Date: 20141002
  Serious: Yes (Hospitalization)
  Sender: FDA-Public Use
  Company Number: US-BRISTOL-MYERS SQUIBB COMPANY-20021622

PATIENT
  Sex: Female

DRUGS (3)
  1. BYETTA PEN DISPOSABLE [Suspect]
     Indication: TYPE 2 DIABETES MELLITUS
     Route: 058
  2. METFORMIN HCL [Suspect]
  3. GLIPIZIDE [Suspect]

REACTIONS (4)
  - Convulsion [Unknown]
  - Drug administration error [Unknown]
  - Blood glucose decreased [Unknown]
  - Product quality issue [Unknown]
